FAERS Safety Report 7470427-2 (Version None)
Quarter: 2011Q2

REPORT INFORMATION
  Report Type: 
  Country: None (occurrence: None)
  Receive Date: 20110510
  Receipt Date: 20110426
  Transmission Date: 20111010
  Serious: Yes (Life-Threatening, Hospitalization, Other)
  Sender: FDA-Public Use
  Company Number: US-BAYER-201041481NA

PATIENT
  Sex: Female
  Weight: 127 kg

DRUGS (13)
  1. ACIPHEX [Concomitant]
     Route: 048
  2. TRAMADOL HCL [Concomitant]
     Route: 048
  3. XANAX [Concomitant]
     Indication: ANXIETY
     Dosage: UNK
     Route: 048
     Dates: start: 20060101
  4. FLUTICASONE PROPIONATE [Concomitant]
  5. LEVSIN [Concomitant]
  6. HYDROCODONE BITARTRATE + IBUPROFEN [Concomitant]
     Route: 048
  7. YAZ [Suspect]
     Dosage: UNK
     Dates: start: 20060101, end: 20070701
  8. LUVOX [Concomitant]
     Indication: OBSESSIVE-COMPULSIVE DISORDER
     Dosage: 100 MG, UNK
     Dates: start: 19950101
  9. XANAX [Concomitant]
     Indication: DEPRESSION
  10. FLUVOXAMINE [Concomitant]
     Route: 048
  11. VICOPROFEN [Concomitant]
     Indication: SLIPPING RIB SYNDROME
     Dosage: UNK
     Route: 048
     Dates: start: 20070101
  12. VICOPROFEN [Concomitant]
     Indication: ARTHRITIS
  13. IMODIUM [Concomitant]

REACTIONS (4)
  - INJURY [None]
  - THROMBOSIS [None]
  - PAIN [None]
  - PULMONARY THROMBOSIS [None]
